FAERS Safety Report 6543062-8 (Version None)
Quarter: 2010Q1

REPORT INFORMATION
  Report Type: 
  Country: None (occurrence: None)
  Receive Date: 20100120
  Receipt Date: 20100116
  Transmission Date: 20100710
  Serious: Yes (Other)
  Sender: FDA-Public Use
  Company Number: US-BAYER-201011600NA

PATIENT
  Sex: Female

DRUGS (1)
  1. AVELOX [Suspect]
     Indication: ACUTE SINUSITIS

REACTIONS (5)
  - DIARRHOEA [None]
  - HALLUCINATION [None]
  - NIGHTMARE [None]
  - PAIN IN JAW [None]
  - VOMITING [None]
